FAERS Safety Report 18428234 (Version 3)
Quarter: 2021Q1

REPORT INFORMATION
  Report Type: Report from Study
  Country: CA (occurrence: CA)
  Receive Date: 20201026
  Receipt Date: 20210112
  Transmission Date: 20210419
  Serious: Yes (Other)
  Sender: FDA-Public Use
  Company Number: CA-UCBSA-2020040254

PATIENT
  Age: 36 Year
  Sex: Female

DRUGS (3)
  1. CERTOLIZUMAB PEGOL AUTOCLICKS [Suspect]
     Active Substance: CERTOLIZUMAB PEGOL
     Indication: RHEUMATOID ARTHRITIS
     Dosage: 400 MILLIGRAM, EV 2 WEEKS(QOW)
     Route: 058
     Dates: start: 20201002, end: 20201030
  2. CERTOLIZUMAB PEGOL AUTOCLICKS [Suspect]
     Active Substance: CERTOLIZUMAB PEGOL
     Dosage: 200 MILLIGRAM, EV 2 WEEKS(QOW)
     Route: 058
     Dates: start: 2020, end: 2020
  3. GRAVOL [Concomitant]
     Active Substance: DIMENHYDRINATE
     Indication: PRODUCT USED FOR UNKNOWN INDICATION

REACTIONS (14)
  - Administration site pain [Recovered/Resolved]
  - Nausea [Recovered/Resolved]
  - Headache [Recovered/Resolved]
  - Hypertension [Recovered/Resolved]
  - Dyspnoea [Recovered/Resolved]
  - Eye infection [Recovered/Resolved]
  - Nasal ulcer [Recovered/Resolved]
  - Fatigue [Recovered/Resolved]
  - Injection site pallor [Recovered/Resolved]
  - Palpitations [Recovered/Resolved]
  - Oral herpes [Recovered/Resolved]
  - Fungal infection [Recovered/Resolved]
  - Dizziness [Recovered/Resolved]
  - Tinnitus [Recovered/Resolved]

NARRATIVE: CASE EVENT DATE: 2020
